FAERS Safety Report 25131516 (Version 1)
Quarter: 2025Q1

REPORT INFORMATION
  Report Type: Spontaneous
  Country: US (occurrence: US)
  Receive Date: 20250327
  Receipt Date: 20250327
  Transmission Date: 20250408
  Serious: Yes (Other)
  Sender: PFIZER
  Company Number: US-PFIZER INC-PV202300104576

PATIENT
  Age: 58 Year
  Sex: Female

DRUGS (7)
  1. XELJANZ [Suspect]
     Active Substance: TOFACITINIB CITRATE
     Dates: start: 2019
  2. VILAZODONE [Concomitant]
     Active Substance: VILAZODONE
  3. SPIRONOLACTONE AND HYDROCHLOROTHIAZIDE [Concomitant]
     Active Substance: HYDROCHLOROTHIAZIDE\SPIRONOLACTONE
  4. CELEBREX [Concomitant]
     Active Substance: CELECOXIB
  5. OXYCODONE [Concomitant]
     Active Substance: OXYCODONE
  6. ZALEPLON [Concomitant]
     Active Substance: ZALEPLON
  7. EZETIMIBE [Concomitant]
     Active Substance: EZETIMIBE

REACTIONS (2)
  - Chronic kidney disease [Not Recovered/Not Resolved]
  - Cell marker decreased [Not Recovered/Not Resolved]

NARRATIVE: CASE EVENT DATE: 20210101
